FAERS Safety Report 17879272 (Version 1)
Quarter: 2020Q2

REPORT INFORMATION
  Report Type: Spontaneous
  Country: FR (occurrence: FR)
  Receive Date: 20200610
  Receipt Date: 20200610
  Transmission Date: 20200714
  Serious: Yes (Hospitalization)
  Sender: FDA-Public Use
  Company Number: FR-TEVA-2020-FR-1245302

PATIENT
  Age: 87 Year
  Sex: Male
  Weight: 78 kg

DRUGS (16)
  1. KARDEGIC [Suspect]
     Active Substance: ASPIRIN DL-LYSINE
     Indication: ACUTE CORONARY SYNDROME
     Dosage: 1 DOSAGE FORM
     Route: 048
     Dates: start: 20191226
  2. CITALOPRAM (BROMHYDRATE DE) [Concomitant]
     Active Substance: CITALOPRAM HYDROBROMIDE
     Dosage: UNSPECIFIED
     Route: 048
     Dates: start: 20200115
  3. ALLOPURINOL. [Concomitant]
     Active Substance: ALLOPURINOL
     Dosage: 100 MG
     Route: 048
     Dates: start: 20191226
  4. LACTULOSE. [Concomitant]
     Active Substance: LACTULOSE
     Dosage: 10 GRAM
     Route: 048
     Dates: start: 20191226
  5. COLECALCIFEROL [Concomitant]
     Active Substance: CHOLECALCIFEROL
     Dosage: UNSPECIFIED
     Route: 048
  6. PERINDOPRIL INDAPAMIDE ARROW 4 MG/1,25 MG, COMPRIME [Concomitant]
     Dosage: 1 DOSAGE FORM
     Route: 048
     Dates: start: 20200120
  7. SERESTA 10 MG, COMPRIME [Concomitant]
     Active Substance: OXAZEPAM
     Dosage: 1 DOSAGE FORM
     Route: 048
     Dates: start: 20200120
  8. ECONAZOLE. [Concomitant]
     Active Substance: ECONAZOLE NITRATE
     Dosage: 2 DOSAGE FORMS
     Route: 003
     Dates: start: 20200109
  9. BISOPROLOL (FUMARATE DE) [Concomitant]
     Active Substance: BISOPROLOL FUMARATE
     Dosage: 5 MG
     Route: 048
     Dates: start: 20191226
  10. SIMVASTATINE [Concomitant]
     Active Substance: SIMVASTATIN
     Dosage: 40 MG
     Route: 048
     Dates: start: 20191226
  11. CLOPIDOGREL (BESILATE DE) [Suspect]
     Active Substance: CLOPIDOGREL BESILATE
     Indication: ACUTE CORONARY SYNDROME
     Dosage: 75 MG
     Route: 048
     Dates: start: 20191226, end: 20200217
  12. FUROSEMIDE. [Concomitant]
     Active Substance: FUROSEMIDE
     Dosage: 40 MG
     Route: 048
     Dates: start: 20191226
  13. HEPARINE CALCIQUE [Suspect]
     Active Substance: HEPARIN CALCIUM
     Indication: THROMBOSIS PROPHYLAXIS
     Dosage: 0.4 ML
     Route: 058
     Dates: start: 20191226
  14. LERCANIDIPINE (CHLORHYDRATE DE) [Concomitant]
     Active Substance: LERCANIDIPINE HYDROCHLORIDE
     Dosage: 10 MG
     Route: 048
     Dates: start: 20191226
  15. PANTOPRAZOLE [Concomitant]
     Active Substance: PANTOPRAZOLE
     Dosage: 20 MG
     Route: 048
     Dates: start: 20191226
  16. DOLIPRANE 1000 MG, GELULE [Concomitant]
     Dosage: 3 DOSAGE FORMS
     Route: 048
     Dates: start: 20191226

REACTIONS (1)
  - Vascular purpura [Recovering/Resolving]

NARRATIVE: CASE EVENT DATE: 20200217
